FAERS Safety Report 9507230 (Version 1)
Quarter: 2013Q3

REPORT INFORMATION
  Report Type: Spontaneous
  Country: US (occurrence: US)
  Receive Date: 20130909
  Receipt Date: 20130909
  Transmission Date: 20140515
  Serious: Yes (Other)
  Sender: FDA-Public Use
  Company Number: PHEH2013US018747

PATIENT
  Sex: Female

DRUGS (11)
  1. VIVELLE DOT [Suspect]
     Dosage: 0.025 MG, UNK
     Route: 062
  2. NORTRIPTYLINE HCL [Concomitant]
     Dosage: 10 MG, BID
     Route: 048
  3. SYNTHROID [Concomitant]
     Dosage: 75 UG, QD
  4. FLEXERIL [Concomitant]
     Dosage: 5 MG, BID
  5. FAMOTIDINE [Concomitant]
     Dosage: 20 MG, BID
  6. PROGESTERONE [Concomitant]
     Dosage: 25 MG, BID
  7. VITAMIN D [Concomitant]
     Dosage: 1.25 MG, UNK
  8. PERCOCET [Concomitant]
     Dosage: 5/325 MG EVERY 6 HRS PRN (AS NEEDED)
     Route: 048
     Dates: start: 201303
  9. MELOXICAM [Concomitant]
     Dosage: 7.5 MG, QD
     Route: 048
  10. MELOXICAM [Concomitant]
     Dosage: 0.5 DF, UNK
     Route: 048
  11. BABY ASPIRIN [Concomitant]
     Dosage: 81 MG, BID

REACTIONS (5)
  - Ulcer haemorrhage [Unknown]
  - Fall [Unknown]
  - Discomfort [Unknown]
  - Vulvovaginal discomfort [Unknown]
  - Arthralgia [Unknown]
